FAERS Safety Report 6460780-0 (Version None)
Quarter: 2009Q4

REPORT INFORMATION
  Report Type: 
  Country: None (occurrence: None)
  Receive Date: 20091130
  Receipt Date: 20091123
  Transmission Date: 20100525
  Serious: Yes (Life-Threatening, Hospitalization)
  Sender: FDA-Public Use
  Company Number: US-ELI_LILLY_AND_COMPANY-US200911003526

PATIENT
  Sex: Female
  Weight: 83 kg

DRUGS (7)
  1. OLANZAPINE + FLUOXETINE HCL [Suspect]
     Indication: DEPRESSION
     Dosage: 1 D/F, UNK
     Dates: start: 20090820, end: 20090822
  2. OLANZAPINE + FLUOXETINE HCL [Suspect]
     Dosage: 1 D/F, UNK
     Dates: start: 20090823, end: 20090909
  3. OLANZAPINE + FLUOXETINE HCL [Suspect]
     Dosage: 1 D/F, UNK
     Dates: start: 20090910, end: 20090922
  4. OLANZAPINE + FLUOXETINE HCL [Suspect]
     Dosage: 1 D/F, UNK
     Dates: start: 20090923, end: 20091105
  5. FISH OIL [Concomitant]
     Indication: PROPHYLAXIS
     Dosage: 1 U, DAILY (1/D)
  6. ADVIL LIQUI-GELS [Concomitant]
     Indication: HEADACHE
     Dosage: 200 MG, UNK
     Dates: start: 20090910, end: 20090910
  7. TYLENOL [Concomitant]
     Indication: PYREXIA
     Dosage: 2 D/F, UNK
     Dates: start: 20090905, end: 20090905

REACTIONS (1)
  - SUICIDAL IDEATION [None]
